FAERS Safety Report 15035697 (Version 1)
Quarter: 2018Q2

REPORT INFORMATION
  Report Type: Spontaneous
  Country: JP (occurrence: JP)
  Receive Date: 20180620
  Receipt Date: 20180620
  Transmission Date: 20180711
  Serious: Yes (Other)
  Sender: FDA-Public Use
  Company Number: JP-GLAXOSMITHKLINE-JP2018JPN106098

PATIENT
  Sex: Male

DRUGS (1)
  1. ZAGALLO [Suspect]
     Active Substance: DUTASTERIDE
     Dosage: UNK
     Route: 048
     Dates: start: 20180320

REACTIONS (2)
  - Pyrexia [Unknown]
  - Hyperthyroidism [Unknown]
